FAERS Safety Report 9025437 (Version 2)
Quarter: 2013Q1

REPORT INFORMATION
  Report Type: Spontaneous
  Country: FR (occurrence: FR)
  Receive Date: 20130122
  Receipt Date: 20130308
  Transmission Date: 20140127
  Serious: Yes (Death, Hospitalization)
  Sender: FDA-Public Use
  Company Number: FR-B.I. PHARMACEUTICALS,INC./RIDGEFIELD-2013-FF-00124FF

PATIENT
  Age: 97 Year
  Sex: Female
  Weight: 75 kg

DRUGS (10)
  1. PRADAXA [Suspect]
     Indication: ATRIAL FIBRILLATION
     Dosage: 220 MG
     Route: 048
     Dates: start: 20121212, end: 20121217
  2. PRADAXA [Suspect]
     Indication: ATRIAL FIBRILLATION
  3. CORTANCYL [Concomitant]
     Indication: BRONCHITIS
     Dosage: 5 MG
     Route: 048
     Dates: start: 20121207
  4. CORTANCYL [Concomitant]
     Indication: INTERSTITIAL LUNG DISEASE
  5. MONO TILDIEM [Concomitant]
     Indication: ATRIAL FIBRILLATION
     Dosage: 200 MG
     Route: 048
     Dates: start: 20121214
  6. MONO TILDIEM [Concomitant]
     Indication: ATRIAL FIBRILLATION
  7. LASILIX [Concomitant]
     Indication: CARDIAC FAILURE
     Dosage: 40 MG
     Route: 048
     Dates: start: 20121203
  8. DIFFU K [Concomitant]
     Indication: CARDIAC FAILURE
     Route: 048
     Dates: start: 20121213
  9. AUGMENTIN [Concomitant]
     Indication: BRONCHITIS
     Dosage: 3000 MG
     Route: 048
     Dates: start: 20121214
  10. CORDARONE [Concomitant]
     Dates: end: 20121213

REACTIONS (4)
  - Cardiac failure [Fatal]
  - Cardiac failure [Not Recovered/Not Resolved]
  - Pulmonary oedema [Unknown]
  - Subcutaneous haematoma [Recovered/Resolved]
